FAERS Safety Report 18993176 (Version 1)
Quarter: 2021Q1

REPORT INFORMATION
  Report Type: Spontaneous
  Country: BE (occurrence: BE)
  Receive Date: 20210310
  Receipt Date: 20210310
  Transmission Date: 20210420
  Serious: Yes (Other)
  Sender: FDA-Public Use
  Company Number: BE-EISAI MEDICAL RESEARCH-EC-2021-089093

PATIENT
  Sex: Female

DRUGS (1)
  1. FYCOMPA [Suspect]
     Active Substance: PERAMPANEL
     Indication: EPILEPSY
     Dosage: DOSE AND FREQUENCY NOT PROVIDED
     Route: 048

REACTIONS (2)
  - Neutropenia [Unknown]
  - Thrombocytopenia [Unknown]
